FAERS Safety Report 15385725 (Version 3)
Quarter: 2019Q1

REPORT INFORMATION
  Report Type: Spontaneous
  Country: JP (occurrence: JP)
  Receive Date: 20180914
  Receipt Date: 20190218
  Transmission Date: 20190417
  Serious: Yes (Hospitalization, Other)
  Sender: FDA-Public Use
  Company Number: JP-009507513-1808JPN002218J

PATIENT
  Age: 70 Year
  Sex: Male
  Weight: 76 kg

DRUGS (2)
  1. KEYTRUDA [Suspect]
     Active Substance: PEMBROLIZUMAB
     Indication: LUNG ADENOCARCINOMA STAGE III
     Dosage: 200 MILLIGRAM, Q3W
     Route: 041
     Dates: start: 20180612, end: 20180612
  2. PREDONINE [Suspect]
     Active Substance: PREDNISOLONE
     Dosage: 30 MILLIGRAM, UNKNOWN

REACTIONS (2)
  - Type 2 diabetes mellitus [Recovered/Resolved]
  - Interstitial lung disease [Recovered/Resolved]

NARRATIVE: CASE EVENT DATE: 20180704
